FAERS Safety Report 5347551-3 (Version None)
Quarter: 2007Q2

REPORT INFORMATION
  Report Type: 
  Country: None (occurrence: None)
  Receive Date: 20070504
  Receipt Date: 20070104
  Transmission Date: 20071010
  Serious: Yes (Hospitalization)
  Sender: FDA-Public Use
  Company Number: PHEH2007US00524

PATIENT
  Age: 59 Year
  Sex: Female

DRUGS (5)
  1. DIOVAN HCT [Suspect]
     Indication: HYPERTENSION
     Dosage: 320MG VAL/25MG HCT, QD
     Dates: start: 20061001, end: 20061105
  2. COREG [Suspect]
     Indication: HYPERTENSION
     Dates: start: 20061001, end: 20061105
  3. BYETTA [Concomitant]
  4. METFORMIN HCL [Concomitant]
  5. LEVOTHYROXINE SODIUM [Concomitant]

REACTIONS (3)
  - HYPERGLYCAEMIA [None]
  - RASH PRURITIC [None]
  - URTICARIA [None]
